FAERS Safety Report 12502553 (Version 1)
Quarter: 2016Q2

REPORT INFORMATION
  Report Type: Spontaneous
  Country: DE (occurrence: DE)
  Receive Date: 20160627
  Receipt Date: 20160627
  Transmission Date: 20160815
  Serious: Yes (Other)
  Sender: FDA-Public Use
  Company Number: DE-ASTRAZENECA-2016SE67572

PATIENT
  Age: 32 Year
  Sex: Female
  Weight: 84 kg

DRUGS (6)
  1. L-THYROXIN 75 HENNING [Concomitant]
     Indication: HYPOTHYROIDISM
     Route: 048
  2. FEMIBION [Concomitant]
     Active Substance: VITAMINS
     Indication: NEURAL TUBE DEFECT
     Route: 048
     Dates: start: 20150720, end: 20160328
  3. INSULIN [Concomitant]
     Active Substance: INSULIN NOS
     Indication: GESTATIONAL DIABETES
     Dosage: 41 IE/DAY
     Route: 058
     Dates: start: 20151215, end: 20160328
  4. SEROQUEL XR [Suspect]
     Active Substance: QUETIAPINE FUMARATE
     Indication: SCHIZOAFFECTIVE DISORDER
     Route: 048
     Dates: start: 2012
  5. SEROQUEL XR [Suspect]
     Active Substance: QUETIAPINE FUMARATE
     Indication: SCHIZOAFFECTIVE DISORDER
     Route: 048
     Dates: start: 20150616, end: 20160328
  6. L-THYROXIN 75 HENNING [Concomitant]
     Indication: HYPOTHYROIDISM
     Route: 048
     Dates: start: 20150616, end: 20160328

REACTIONS (2)
  - Gestational diabetes [Unknown]
  - Exposure during pregnancy [Unknown]
